FAERS Safety Report 7645968-5 (Version None)
Quarter: 2011Q3

REPORT INFORMATION
  Report Type: 
  Country: None (occurrence: None)
  Receive Date: 20110729
  Receipt Date: 20110722
  Transmission Date: 20111222
  Serious: Yes (Death)
  Sender: FDA-Public Use
  Company Number: JP-AMGEN-JPNCT2011030286

PATIENT
  Age: 59 Year
  Sex: Male
  Weight: 62 kg

DRUGS (5)
  1. PANITUMUMAB [Suspect]
     Indication: COLORECTAL CANCER
     Dosage: 6 MG/KG, Q2WK
     Route: 041
     Dates: start: 20101125, end: 20110125
  2. GRANISETRON [Concomitant]
     Dosage: UNK
     Route: 042
  3. DEXAMETHASONE SODIUM PHOSPHATE [Suspect]
     Dosage: UNK
     Route: 042
  4. ANTIHISTAMINES [Concomitant]
     Indication: PROPHYLAXIS
     Dosage: UNK
     Route: 065
  5. CORTICOSTEROIDS [Concomitant]
     Indication: PROPHYLAXIS
     Dosage: UNK
     Route: 065

REACTIONS (2)
  - COLORECTAL CANCER [None]
  - DERMATITIS ACNEIFORM [None]
